FAERS Safety Report 14002654 (Version 1)
Quarter: 2017Q3

REPORT INFORMATION
  Report Type: Spontaneous
  Country: GB (occurrence: GB)
  Receive Date: 20170922
  Receipt Date: 20170922
  Transmission Date: 20171128
  Serious: Yes (Other)
  Sender: FDA-Public Use
  Company Number: GB-AUROBINDO-AUR-APL-2017-40480

PATIENT
  Sex: Female

DRUGS (2)
  1. PREDNISOLONE. [Concomitant]
     Active Substance: PREDNISOLONE
     Indication: PRODUCT USED FOR UNKNOWN INDICATION
     Route: 065
  2. METRONIDAZOLE TABLET [Suspect]
     Active Substance: METRONIDAZOLE
     Indication: DENTAL DISORDER PROPHYLAXIS
     Route: 065
     Dates: start: 2017, end: 2017

REACTIONS (7)
  - Asthma [Recovering/Resolving]
  - Lip swelling [Recovering/Resolving]
  - Mucosal dryness [Recovering/Resolving]
  - Wound secretion [Recovering/Resolving]
  - Skin wrinkling [Recovering/Resolving]
  - Lip injury [Recovering/Resolving]
  - Dysphonia [Recovering/Resolving]
